FAERS Safety Report 21544130 (Version 1)
Quarter: 2022Q4

REPORT INFORMATION
  Report Type: Spontaneous
  Country: RU (occurrence: RU)
  Receive Date: 20221102
  Receipt Date: 20221102
  Transmission Date: 20230112
  Serious: Yes (Other)
  Sender: FDA-Public Use
  Company Number: RU-ASPP-GLO2021RU000359

PATIENT

DRUGS (5)
  1. TOPOTECAN [Suspect]
     Active Substance: TOPOTECAN HYDROCHLORIDE
     Indication: Retinoblastoma
     Dosage: 1 MG
     Route: 013
  2. TOPOTECAN [Suspect]
     Active Substance: TOPOTECAN HYDROCHLORIDE
     Dosage: 0.6 MG
     Route: 013
  3. MELPHALAN [Suspect]
     Active Substance: MELPHALAN
     Indication: Retinoblastoma
     Dosage: 20 MCG, INTRA VITREAL
     Route: 031
  4. MELPHALAN [Suspect]
     Active Substance: MELPHALAN
     Dosage: 5 MG
     Route: 013
  5. CARBOPLATIN [Suspect]
     Active Substance: CARBOPLATIN
     Indication: Retinoblastoma
     Dosage: 30 MG
     Route: 013

REACTIONS (5)
  - Retinal detachment [Unknown]
  - Drug ineffective for unapproved indication [Unknown]
  - Therapeutic product effect incomplete [Unknown]
  - Incorrect route of product administration [Unknown]
  - Product use issue [Unknown]
